FAERS Safety Report 9296249 (Version 1)
Quarter: 2013Q2

REPORT INFORMATION
  Report Type: Spontaneous
  Country: GB (occurrence: GB)
  Receive Date: 20130517
  Receipt Date: 20130517
  Transmission Date: 20140414
  Serious: Yes (Other)
  Sender: FDA-Public Use
  Company Number: GB-GLAXOSMITHKLINE-B0892478A

PATIENT
  Age: 53 Year
  Sex: Male

DRUGS (4)
  1. ACITRETIN [Suspect]
     Indication: PRODUCT USED FOR UNKNOWN INDICATION
     Route: 065
     Dates: start: 20121120
  2. DOVOBET [Concomitant]
     Dates: start: 20121219, end: 20130418
  3. RAMIPRIL [Concomitant]
     Dates: start: 20130123, end: 20130403
  4. CALCIUM CARBONATE + SODIUM ALGINATE + SODIUM BICARBONATE [Concomitant]
     Dates: start: 20130226, end: 20130310

REACTIONS (2)
  - Dyspepsia [Unknown]
  - Duodenitis [Unknown]
